FAERS Safety Report 7768485-0 (Version None)
Quarter: 2011Q3

REPORT INFORMATION
  Report Type: 
  Country: None (occurrence: None)
  Receive Date: 20110922
  Receipt Date: 20101018
  Transmission Date: 20111222
  Serious: No
  Sender: FDA-Public Use
  Company Number: US-ASTRAZENECA-2010SE41387

PATIENT
  Age: 41 Year
  Sex: Male
  Weight: 71.7 kg

DRUGS (3)
  1. SEROQUEL [Suspect]
     Indication: SLEEP DISORDER
     Route: 048
     Dates: start: 20061101
  2. SEROQUEL [Suspect]
     Route: 048
  3. SEROQUEL [Suspect]
     Route: 048
     Dates: end: 20091201

REACTIONS (6)
  - MENTAL STATUS CHANGES [None]
  - FOOT FRACTURE [None]
  - HYPERSOMNIA [None]
  - MALNUTRITION [None]
  - ACTIVITIES OF DAILY LIVING IMPAIRED [None]
  - MUSCLE TWITCHING [None]
